FAERS Safety Report 7005194-X (Version None)
Quarter: 2010Q3

REPORT INFORMATION
  Report Type: 
  Country: None (occurrence: None)
  Receive Date: 20100917
  Receipt Date: 20100913
  Transmission Date: 20110219
  Serious: Yes (Disabling)
  Sender: FDA-Public Use
  Company Number: CIP10002176

PATIENT
  Age: 46 Year
  Sex: Female

DRUGS (2)
  1. RISEDRONATE SODIUM [Suspect]
     Indication: OSTEOPOROSIS
     Dosage: 35 MG ONCE WEEKLY, ORAL
     Route: 048
     Dates: start: 20080509, end: 20100201
  2. METRONIDAZOLE [Concomitant]

REACTIONS (5)
  - ALOPECIA [None]
  - ARTHRALGIA [None]
  - DECREASED ACTIVITY [None]
  - MUSCULAR WEAKNESS [None]
  - MYALGIA [None]
